FAERS Safety Report 12548819 (Version 2)
Quarter: 2016Q3

REPORT INFORMATION
  Report Type: Spontaneous
  Country: FR (occurrence: FR)
  Receive Date: 20160712
  Receipt Date: 20160808
  Transmission Date: 20161109
  Serious: Yes (Hospitalization, Other)
  Sender: FDA-Public Use
  Company Number: FR-GLAXOSMITHKLINE-FR2016GSK094341

PATIENT
  Age: 77 Year
  Sex: Male

DRUGS (21)
  1. MABTHERA [Suspect]
     Active Substance: RITUXIMAB
     Dosage: SECOND COURSE OF RITUXIMAB (1 INJECTION OF 500 MG/M2 MONTHLY
     Route: 042
     Dates: start: 20160201
  2. MABTHERA [Suspect]
     Active Substance: RITUXIMAB
     Dosage: 1 INJECTION OF 500 MG/M2 MONTHLY
     Route: 042
     Dates: start: 20160330
  3. MABTHERA [Suspect]
     Active Substance: RITUXIMAB
     Dosage: 500 MG/M2, UNK
     Route: 042
     Dates: start: 20160525
  4. XARELTO [Suspect]
     Active Substance: RIVAROXABAN
     Indication: TRANSIENT ISCHAEMIC ATTACK
     Dosage: 15 MG, UNK
     Route: 048
     Dates: start: 20160104, end: 2016
  5. ZYDELIG [Suspect]
     Active Substance: IDELALISIB
     Indication: LYMPHOMA
     Dosage: 150 MG, Z
     Route: 048
     Dates: start: 20160104, end: 20160525
  6. ZYDELIG [Suspect]
     Active Substance: IDELALISIB
     Dosage: 150 MG, BID
     Route: 048
     Dates: start: 20160301
  7. BISOPROLOL [Concomitant]
     Active Substance: BISOPROLOL
  8. MABTHERA [Suspect]
     Active Substance: RITUXIMAB
     Dosage: THIRD COURSE OF RITUXIMAB (1 INJECTION OF 500 MG/M2 MONTHLY
     Route: 042
     Dates: start: 20160301
  9. PRIMPERAN [Suspect]
     Active Substance: METOCLOPRAMIDE HYDROCHLORIDE
     Indication: NAUSEA
     Dosage: 10 MG, PRN
     Route: 048
     Dates: start: 201601, end: 20160525
  10. MABTHERA [Suspect]
     Active Substance: RITUXIMAB
     Dosage: FIFTH COURSE OF RITUXIMAB
     Route: 042
     Dates: start: 20160427
  11. ZYDELIG [Suspect]
     Active Substance: IDELALISIB
     Dosage: 150 MG, BID
     Route: 048
     Dates: start: 20160330
  12. ZELITREX [Suspect]
     Active Substance: VALACYCLOVIR HYDROCHLORIDE
     Indication: PROPHYLAXIS
     Dosage: UNK
     Route: 048
     Dates: start: 201601, end: 20160525
  13. MABTHERA [Suspect]
     Active Substance: RITUXIMAB
     Indication: LYMPHOMA
     Dosage: UNK
     Route: 042
     Dates: start: 20160104, end: 20160525
  14. ALLOPURINOL. [Suspect]
     Active Substance: ALLOPURINOL
     Indication: PRODUCT USED FOR UNKNOWN INDICATION
     Dosage: 200 MG, QD
     Route: 048
     Dates: start: 201601, end: 20160525
  15. ZYDELIG [Suspect]
     Active Substance: IDELALISIB
     Dosage: 150 MG, BID
     Route: 048
     Dates: start: 20160525
  16. ZELITREX [Suspect]
     Active Substance: VALACYCLOVIR HYDROCHLORIDE
     Dosage: UNK
     Route: 048
     Dates: start: 201601, end: 20160525
  17. FLECAINE [Suspect]
     Active Substance: FLECAINIDE
     Indication: TRANSIENT ISCHAEMIC ATTACK
     Dosage: 150 MG, 1D
     Route: 048
     Dates: start: 20160104
  18. ATORVASTATIN [Concomitant]
     Active Substance: ATORVASTATIN
     Dosage: UNK
     Dates: end: 20160525
  19. BACTRIM [Concomitant]
     Active Substance: SULFAMETHOXAZOLE\TRIMETHOPRIM
     Dosage: 1 UNK, Z
     Dates: start: 201601, end: 20160120
  20. ZYDELIG [Suspect]
     Active Substance: IDELALISIB
     Dosage: 150 MG, BID
     Route: 048
     Dates: start: 20160427
  21. LERCANIDIPINE [Concomitant]
     Active Substance: LERCANIDIPINE

REACTIONS (1)
  - Dermatitis exfoliative [Recovering/Resolving]

NARRATIVE: CASE EVENT DATE: 20160525
